FAERS Safety Report 9150032 (Version 1)
Quarter: 2013Q1

REPORT INFORMATION
  Report Type: Spontaneous
  Country: IT (occurrence: None)
  Receive Date: 20130131
  Receipt Date: 20130131
  Transmission Date: 20140127
  Serious: Yes (Hospitalization)
  Sender: FDA-Public Use
  Company Number: 2013-0357

PATIENT
  Age: 61 Year
  Sex: Male
  Weight: 83 kg

DRUGS (4)
  1. IPSTYL (LANREOTIDE ACETATE) [Suspect]
     Indication: ACROMEGALY
     Route: 030
     Dates: start: 20110606, end: 20130110
  2. SOMAVERT [Suspect]
     Indication: ACROMEGALY
     Dosage: 01-NOV-2013 END  DATE
     Route: 058
     Dates: start: 20101001, end: 20130110
  3. TESTOSTERONE [Concomitant]
  4. EUTIROX [Concomitant]

REACTIONS (4)
  - Drug interaction [None]
  - Incorrect route of drug administration [None]
  - Pituitary tumour benign [None]
  - Cavernous sinus thrombosis [None]
